FAERS Safety Report 21452304 (Version 1)
Quarter: 2022Q4

REPORT INFORMATION
  Report Type: Spontaneous
  Country: JP (occurrence: JP)
  Receive Date: 20221013
  Receipt Date: 20221013
  Transmission Date: 20230113
  Serious: Yes (Death)
  Sender: FDA-Public Use
  Company Number: JP-PFIZER INC-PV202200075815

PATIENT
  Age: 60 Year
  Sex: Male

DRUGS (4)
  1. METHYLPREDNISOLONE SODIUM SUCCINATE [Suspect]
     Active Substance: METHYLPREDNISOLONE SODIUM SUCCINATE
     Dosage: 1000 MG; PULSE THERAPHY
  2. PREDNISOLONE [Concomitant]
     Active Substance: PREDNISOLONE
     Dosage: APPROXIMATELY 0.8 MG/KG/DAY)
  3. PREDNISOLONE [Concomitant]
     Active Substance: PREDNISOLONE
     Dosage: APPROXIMATELY 1 MG/KG/DAY
  4. PREDNISOLONE [Concomitant]
     Active Substance: PREDNISOLONE
     Dosage: APPROXIMATELY 0.8 MG/KG/DAY

REACTIONS (1)
  - Therapeutic response decreased [Fatal]
